FAERS Safety Report 22197697 (Version 2)
Quarter: 2023Q2

REPORT INFORMATION
  Report Type: Spontaneous
  Country: US (occurrence: US)
  Receive Date: 20230411
  Receipt Date: 20230411
  Transmission Date: 20230722
  Serious: Yes (Death)
  Sender: FDA-Public Use
  Company Number: US-PFIZER INC-202300146259

PATIENT
  Age: 69 Year
  Sex: Male

DRUGS (2)
  1. ARGATROBAN [Suspect]
     Active Substance: ARGATROBAN
     Indication: Heparin-induced thrombocytopenia
     Dosage: UNK
  2. TICAGRELOR [Concomitant]
     Active Substance: TICAGRELOR
     Dosage: UNK

REACTIONS (1)
  - Drug ineffective [Fatal]
